FAERS Safety Report 10053640 (Version 1)
Quarter: 2014Q2

REPORT INFORMATION
  Report Type: Spontaneous
  Country: DE (occurrence: FR)
  Receive Date: 20140402
  Receipt Date: 20140402
  Transmission Date: 20141212
  Serious: No
  Sender: FDA-Public Use
  Company Number: US-MERZ PHARMACEUTICALS, LLC DRUG SAFETY-14MRZ-00148

PATIENT
  Sex: 0

DRUGS (1)
  1. ASCLERA [Suspect]
     Indication: PRODUCT USED FOR UNKNOWN INDICATION
     Dosage: UNKNOWN
     Route: 065

REACTIONS (1)
  - Angioedema [Unknown]
